FAERS Safety Report 6357580-9 (Version None)
Quarter: 2009Q3

REPORT INFORMATION
  Report Type: 
  Country: None (occurrence: None)
  Receive Date: 20090916
  Receipt Date: 20090907
  Transmission Date: 20100115
  Serious: Yes (Other)
  Sender: FDA-Public Use
  Company Number: PHHY2009IT38297

PATIENT
  Sex: Female

DRUGS (2)
  1. ZOMETA [Suspect]
     Dosage: 4 MG, UNK
     Route: 042
     Dates: start: 20030501, end: 20060131
  2. ARIMIDEX [Concomitant]
     Dosage: UNK
     Dates: start: 20030101, end: 20050630

REACTIONS (1)
  - OSTEOMYELITIS [None]
